FAERS Safety Report 7146725-9 (Version None)
Quarter: 2010Q4

REPORT INFORMATION
  Report Type: 
  Country: None (occurrence: None)
  Receive Date: 20101208
  Receipt Date: 20101207
  Transmission Date: 20110411
  Serious: Yes (Hospitalization)
  Sender: FDA-Public Use
  Company Number: FR-MERCK-1009FRA00037

PATIENT
  Age: 68 Year
  Sex: Female
  Weight: 65 kg

DRUGS (9)
  1. ZETIA [Suspect]
     Indication: HYPERCHOLESTEROLAEMIA
     Route: 048
     Dates: start: 20051228, end: 20100820
  2. TAHOR [Concomitant]
     Indication: HYPERCHOLESTEROLAEMIA
     Route: 048
     Dates: start: 20011101
  3. METOPROLOL [Concomitant]
     Indication: HYPERTENSION
     Route: 048
  4. COZAAR [Concomitant]
     Indication: HYPERTENSION
     Route: 048
  5. AMLOR [Concomitant]
     Indication: HYPERTENSION
     Route: 048
  6. CLOPIDOGREL BESYLATE [Concomitant]
     Route: 048
  7. KARDEGIC [Concomitant]
     Route: 048
  8. IKOREL [Concomitant]
     Route: 048
  9. PROCORALAN [Concomitant]
     Route: 048

REACTIONS (2)
  - DIABETIC COMPLICATION [None]
  - PANCREATITIS ACUTE [None]
